FAERS Safety Report 10234220 (Version 1)
Quarter: 2014Q1

REPORT INFORMATION
  Report Type: Spontaneous
  Country: US (occurrence: None)
  Receive Date: 20140306
  Receipt Date: 20140306
  Transmission Date: 20141002
  Serious: Yes (Other)
  Sender: FDA-Public Use
  Company Number: 163-21880-13120191

PATIENT
  Age: 84 Year
  Sex: Male
  Weight: 66.7 kg

DRUGS (17)
  1. REVLIMID (LENALIDOMIDE) (15 MILLIGRAM, CAPSULES) [Suspect]
     Indication: WALDENSTROM^S MACROGLOBULINAEMIA
     Dosage: 15 MG, 21 IN 21 D, PO
     Route: 048
     Dates: start: 20130906
  2. CENTRUM SILVER (CENTRIUM SILVER) [Concomitant]
  3. ROPINIROLE HCL (ROPINIROLE HYDROCHLORIDE) [Concomitant]
  4. FLUCINONIDE-E (FLUCINONDIE) [Concomitant]
  5. DONEPEZIL HCL (DONEPEZIL HYDROCHLORIDE) [Concomitant]
  6. GABAPENTIN (GABAPENTIN) [Concomitant]
  7. ALENDRONATE SODIUM (ALENDRONATE SODIUM) (ALENDRONATE SODIUM) [Concomitant]
  8. FINASTERIDE (FINASTERIDE) [Concomitant]
  9. BACLOFEN (BACLOFEN) [Concomitant]
  10. LATANOPROST (LATANOPROST) (NONE) [Concomitant]
  11. IMODIUM AD (LOPERAMIDE HYDROCHLORIDE) [Concomitant]
  12. NAMENDA (MEMANTINE HYDROCHLORIDE) [Concomitant]
  13. POLY IRON PN FORTE (HEMOCYTE-F FLIXIR) [Concomitant]
  14. ASPIRIN (ACETYLSALICYLIC ACID) [Concomitant]
  15. COQ10 (UBIDECARENONE) [Concomitant]
  16. CALCIUM PLUS D3 (CALCIUM D3) [Concomitant]
  17. VITAMINS D (ERGOCALCIFEROL) [Concomitant]

REACTIONS (9)
  - Neuropathy peripheral [None]
  - Mouth breathing [None]
  - Confusional state [None]
  - Night sweats [None]
  - Pyrexia [None]
  - Tremor [None]
  - Cough [None]
  - Chills [None]
  - Diarrhoea [None]
